FAERS Safety Report 13495882 (Version 2)
Quarter: 2017Q2

REPORT INFORMATION
  Report Type: Spontaneous
  Country: US (occurrence: US)
  Receive Date: 20170428
  Receipt Date: 20170630
  Transmission Date: 20170830
  Serious: Yes (Hospitalization, Other)
  Sender: FDA-Public Use
  Company Number: US-PFIZER INC-2017180490

PATIENT
  Age: 52 Year
  Sex: Male
  Weight: 56 kg

DRUGS (12)
  1. VIAGRA [Suspect]
     Active Substance: SILDENAFIL CITRATE
     Indication: ERECTILE DYSFUNCTION
     Dosage: 100 MG, AS NEEDED, WHEN HIS IS IN THE MOOD
     Route: 048
  2. NEURONTIN [Concomitant]
     Active Substance: GABAPENTIN
     Dosage: 600 MG, UNK
     Dates: start: 2001
  3. NEURONTIN [Concomitant]
     Active Substance: GABAPENTIN
     Indication: SEIZURE
     Dosage: 300 MG, UNK
     Dates: start: 19980827
  4. AMITRIPTYLINE [Concomitant]
     Active Substance: AMITRIPTYLINE
     Indication: SLEEP DISORDER
     Dosage: 45 MG, 1X/DAY, EACH NIGHT
     Route: 048
  5. REMERON [Concomitant]
     Active Substance: MIRTAZAPINE
     Indication: SLEEP DISORDER
     Dosage: 45 MG, 1X/DAY, EACH NIGHT
     Route: 048
     Dates: start: 2001
  6. AMITRIPTYLINE [Concomitant]
     Active Substance: AMITRIPTYLINE
     Dosage: UNK
     Dates: start: 2016
  7. VALIUM [Concomitant]
     Active Substance: DIAZEPAM
     Indication: NERVOUSNESS
     Dosage: 10 MG, 2X/DAY
     Route: 048
     Dates: start: 2001
  8. VIAGRA [Suspect]
     Active Substance: SILDENAFIL CITRATE
     Indication: BRAIN INJURY
     Dosage: 100 MG, UNK (10 TIMES A MONTH BUT COULD USE 20 TO 25 TIMES A MONTH)
     Route: 048
  9. REMERON [Concomitant]
     Active Substance: MIRTAZAPINE
     Dosage: UNK
     Dates: start: 2002
  10. NEURONTIN [Concomitant]
     Active Substance: GABAPENTIN
     Dosage: 300 MG, 3X/DAY
     Route: 048
     Dates: start: 19990827
  11. VALIUM [Concomitant]
     Active Substance: DIAZEPAM
     Dosage: UNK
     Dates: start: 2002
  12. NEURONTIN [Concomitant]
     Active Substance: GABAPENTIN
     Indication: BRAIN INJURY
     Dosage: 600 MG TABLET, ONE TABLET IN THE MORNING, ONE TABLET AT LUNCH TIME, TWO TABLETS IN EVENING
     Route: 048
     Dates: start: 19990827

REACTIONS (6)
  - Renal disorder [Recovering/Resolving]
  - Hepatitis C [Recovered/Resolved]
  - Fall [Recovered/Resolved]
  - Liver disorder [Not Recovered/Not Resolved]
  - Blood pressure increased [Recovered/Resolved]
  - Large intestine perforation [Recovered/Resolved]

NARRATIVE: CASE EVENT DATE: 2013
